APPROVED DRUG PRODUCT: NAPROXEN SODIUM
Active Ingredient: NAPROXEN SODIUM
Strength: EQ 500MG BASE
Dosage Form/Route: TABLET;ORAL
Application: A074319 | Product #002
Applicant: PUREPAC PHARMACEUTICAL CO
Approved: Mar 20, 1995 | RLD: No | RS: No | Type: DISCN